FAERS Safety Report 7708867-6 (Version None)
Quarter: 2011Q3

REPORT INFORMATION
  Report Type: 
  Country: None (occurrence: None)
  Receive Date: 20110825
  Receipt Date: 20110816
  Transmission Date: 20111222
  Serious: Yes (Hospitalization)
  Sender: FDA-Public Use
  Company Number: RU-SANOFI-AVENTIS-2011SA044162

PATIENT
  Age: 73 Year
  Sex: Female
  Weight: 76 kg

DRUGS (8)
  1. INDAPAMIDE [Concomitant]
  2. BISOPROLOL FUMARATE [Concomitant]
  3. ASPIRIN [Concomitant]
  4. CORDIPIN [Concomitant]
  5. DRONEDARONE HCL [Suspect]
     Indication: ATRIAL FIBRILLATION
     Route: 048
     Dates: start: 20101012
  6. AMLODIPINE [Concomitant]
  7. WARFARIN SODIUM [Concomitant]
  8. ENALAPRIL MALEATE [Concomitant]

REACTIONS (2)
  - VENTRICULAR EXTRASYSTOLES [None]
  - BRADYCARDIA [None]
